FAERS Safety Report 8913319 (Version 1)
Quarter: 2012Q4

REPORT INFORMATION
  Report Type: Spontaneous
  Country: TR (occurrence: None)
  Receive Date: 20121113
  Receipt Date: 20121113
  Transmission Date: 20130627
  Serious: Yes (Hospitalization, Other)
  Sender: FDA-Public Use
  Company Number: VAL_00954_2012

PATIENT
  Age: 14 Month
  Sex: Female

DRUGS (1)
  1. CARBAMAZEPINE [Suspect]
     Indication: PRODUCT USED FOR UNKNOWN INDICATION
     Dosage: not the prescribed dose

REACTIONS (4)
  - Grand mal convulsion [None]
  - Altered state of consciousness [None]
  - Hyponatraemia [None]
  - Toxicity to various agents [None]
